FAERS Safety Report 18691073 (Version 1)
Quarter: 2021Q1

REPORT INFORMATION
  Report Type: Spontaneous
  Country: HR (occurrence: HR)
  Receive Date: 20210101
  Receipt Date: 20210101
  Transmission Date: 20210419
  Serious: Yes (Other)
  Sender: FDA-Public Use
  Company Number: HR-LUPIN PHARMACEUTICALS INC.-2020-01324

PATIENT
  Age: 42 Year
  Sex: Female

DRUGS (5)
  1. SERTRALINE [Suspect]
     Active Substance: SERTRALINE HYDROCHLORIDE
     Indication: DEPRESSION
     Dosage: 25 MILLIGRAM, QD
     Route: 065
     Dates: start: 201201, end: 2012
  2. SERTRALINE [Suspect]
     Active Substance: SERTRALINE HYDROCHLORIDE
     Dosage: DOSE WAS INCREASED TO 50 DAILY DURING THE NEXT THREE DAYS
     Route: 065
     Dates: start: 2012, end: 2012
  3. PAROXETINE. [Suspect]
     Active Substance: PAROXETINE
     Indication: DEPRESSION
     Dosage: UNK
     Route: 065
  4. ALPRAZOLAM. [Concomitant]
     Active Substance: ALPRAZOLAM
     Indication: DEPRESSION
     Dosage: WITH A SUGGESTION TO USE IT ONLY WHEN REALLY NEEDED RATHER THAN REGULARLY
     Route: 065
     Dates: start: 201201
  5. SERTRALINE [Suspect]
     Active Substance: SERTRALINE HYDROCHLORIDE
     Dosage: DOSE WAS INCREASED TO 75 MG DAILY
     Route: 065
     Dates: start: 2012, end: 2012

REACTIONS (6)
  - Libido decreased [Unknown]
  - Hyperprolactinaemia [Unknown]
  - Temporomandibular joint syndrome [Unknown]
  - Yawning [Recovered/Resolved]
  - Drug intolerance [Unknown]
  - Anorgasmia [Unknown]

NARRATIVE: CASE EVENT DATE: 2012
